FAERS Safety Report 10009484 (Version 2)
Quarter: 2014Q1

REPORT INFORMATION
  Report Type: Spontaneous
  Country: US (occurrence: US)
  Receive Date: 20140313
  Receipt Date: 20140313
  Transmission Date: 20141002
  Serious: No
  Sender: FDA-Public Use
  Company Number: US-INCYTE CORPORATION-2012IN001350

PATIENT
  Sex: Male
  Weight: 71.9 kg

DRUGS (15)
  1. JAKAFI [Suspect]
     Indication: POLYCYTHAEMIA
     Dosage: 20 MG, BID
     Route: 048
     Dates: start: 20120214, end: 20120723
  2. ALLEGRA [Concomitant]
  3. ASPIRIN [Concomitant]
     Dosage: 81 MG, UNK
  4. CALCIUM [Concomitant]
     Indication: SUPPLEMENTATION THERAPY
  5. CHOLESTYRAMINE [Concomitant]
  6. ERYTHROMYCIN [Concomitant]
     Indication: DRUG THERAPY
  7. FLUTICASONE [Concomitant]
  8. IMDUR [Concomitant]
  9. NIASPAN [Concomitant]
  10. NTG [Concomitant]
  11. OMEPRAZOLE [Concomitant]
  12. VITAMIN B COMPLEX [Concomitant]
  13. VITAMIN B6 [Concomitant]
  14. XANAX [Concomitant]
  15. QUININE [Concomitant]

REACTIONS (1)
  - Muscle spasms [Recovered/Resolved]
